FAERS Safety Report 10086982 (Version 1)
Quarter: 2014Q2

REPORT INFORMATION
  Report Type: Report from Study
  Country: BR (occurrence: BR)
  Receive Date: 20140418
  Receipt Date: 20140418
  Transmission Date: 20141212
  Serious: Yes (Death, Hospitalization)
  Sender: FDA-Public Use
  Company Number: PHHY2014BR047441

PATIENT
  Sex: Female
  Weight: 50 kg

DRUGS (1)
  1. DIOVAN [Suspect]
     Indication: HYPERTENSION
     Dosage: 0.5 DF, (320 MG  VALS)
     Route: 048
     Dates: end: 201403

REACTIONS (5)
  - Renal disorder [Fatal]
  - Bacterial infection [Fatal]
  - Gait disturbance [Unknown]
  - Asthenia [Unknown]
  - Wrong technique in drug usage process [Unknown]
